FAERS Safety Report 8536785-2 (Version None)
Quarter: 2012Q3

REPORT INFORMATION
  Report Type: 
  Country: None (occurrence: None)
  Receive Date: 20120712
  Receipt Date: 20120612
  Transmission Date: 20120928
  Serious: Yes (Other)
  Sender: FDA-Public Use
  Company Number: DSA_58401_2012

PATIENT

DRUGS (5)
  1. FLUOROURACIL [Suspect]
     Indication: COLORECTAL CANCER STAGE III
     Dosage: 2400 MG/M2 INTRAVENOUS
     Route: 042
  2. OXALIPLATIN [Suspect]
     Indication: COLORECTAL CANCER STAGE III
     Dosage: 85 MG/M2 INTRAVENOUS
     Route: 042
  3. LEUCOVORIN CALCIUM [Suspect]
     Indication: COLORECTAL CANCER STAGE III
     Dosage: 200 MG/M2 INTRAVENOUS
     Route: 042
  4. GRANISETRON [Concomitant]
  5. DEXAMETHASONE [Concomitant]

REACTIONS (2)
  - VOMITING [None]
  - NAUSEA [None]
